FAERS Safety Report 24419742 (Version 1)
Quarter: 2024Q4

REPORT INFORMATION
  Report Type: Spontaneous
  Country: GB (occurrence: GB)
  Receive Date: 20241010
  Receipt Date: 20241010
  Transmission Date: 20250114
  Serious: Yes (Disabling, Other)
  Sender: ACCORD
  Company Number: None

PATIENT
  Sex: Female
  Weight: 65 kg

DRUGS (16)
  1. RANOLAZINE [Suspect]
     Active Substance: RANOLAZINE
     Indication: Angina pectoris
     Dates: start: 20240815, end: 20240919
  2. CLOPIDOGREL [Concomitant]
     Active Substance: CLOPIDOGREL BISULFATE
     Dosage: 75MG TABLETS (28) TABLET.
  3. DAPAGLIFLOZIN [Concomitant]
     Active Substance: DAPAGLIFLOZIN
     Dosage: 10MG TABLETS (28) TABLET.
  4. AMLODIPINE [Concomitant]
     Active Substance: AMLODIPINE BESYLATE
     Dosage: 5MG TABLETS (28) TABLET.
  5. RAMIPRIL [Concomitant]
     Active Substance: RAMIPRIL
     Dosage: 10MG CAPSULES (28) CAPSULE.
  6. ISOSORBIDE MONONITRATE [Concomitant]
     Active Substance: ISOSORBIDE MONONITRATE
     Dosage: 10MG TABLETS (56) TABLET
  7. LANSOPRAZOLE [Concomitant]
     Active Substance: LANSOPRAZOLE
     Dosage: 30MG GASTRO-RESISTANT CAPSULES (28) CAPSULE.
  8. GLUCOPHAGE XR [Concomitant]
     Active Substance: METFORMIN HYDROCHLORIDE
     Dosage: 500MG TABLETS (MERCK SERONO LTD) (112) TABLET.
  9. HYPROMELLOSES [Concomitant]
     Active Substance: HYPROMELLOSES
     Dosage: 0.3% EYE DROPS (10) ML.
  10. PRAVASTATIN [Concomitant]
     Active Substance: PRAVASTATIN
     Dosage: 20MG TABLETS (28) TABLET.
  11. IBUPROFEN [Concomitant]
     Active Substance: IBUPROFEN
     Dosage: 10% GEL (100) GRAM.
  12. CALCEOS [Concomitant]
     Active Substance: CALCIUM CARBONATE\CHOLECALCIFEROL
     Dosage: 500MG/400UNIT CHEWABLE TABLETS (GALEN LTD) (56) TABLET.
  13. BISOPROLOL [Concomitant]
     Active Substance: BISOPROLOL\BISOPROLOL FUMARATE
     Dosage: 2.5MG TABLETS (56) TABLET.
  14. BUPRENORPHINE [Concomitant]
     Active Substance: BUPRENORPHINE
     Dosage: 5MICROGRAMS/HOUR TRANSDERMAL PATCHES (SANDOZ LTD).
  15. ALENDRONIC ACID [Concomitant]
     Active Substance: ALENDRONIC ACID
     Dosage: 70MG TABLETS (4) TABLET.
  16. ACETAMINOPHEN [Concomitant]
     Active Substance: ACETAMINOPHEN
     Dosage: 500MG TABLETS (100) TABLET.

REACTIONS (4)
  - Flushing [Recovering/Resolving]
  - Confusional state [Recovering/Resolving]
  - Nausea [Recovering/Resolving]
  - Palpitations [Recovering/Resolving]

NARRATIVE: CASE EVENT DATE: 20240815
